FAERS Safety Report 6600658-2 (Version None)
Quarter: 2010Q1

REPORT INFORMATION
  Report Type: 
  Country: None (occurrence: None)
  Receive Date: 20100223
  Receipt Date: 20100223
  Transmission Date: 20100710
  Serious: Yes (Other)
  Sender: FDA-Public Use
  Company Number: None

PATIENT
  Age: 39 Year
  Sex: Female
  Weight: 113.3993 kg

DRUGS (3)
  1. D.H.E. 45 [Suspect]
     Indication: MIGRAINE
     Dates: start: 20100219, end: 20100219
  2. PHENERGAN HCL [Suspect]
  3. TORADOL [Suspect]

REACTIONS (13)
  - ABDOMINAL PAIN [None]
  - CHEST PAIN [None]
  - DEAFNESS UNILATERAL [None]
  - DYSPNOEA [None]
  - ELECTROCARDIOGRAM ABNORMAL [None]
  - ELECTROCARDIOGRAM T WAVE AMPLITUDE DECREASED [None]
  - FEELING ABNORMAL [None]
  - HYPERHIDROSIS [None]
  - HYPOAESTHESIA [None]
  - PALLOR [None]
  - PALPITATIONS [None]
  - PARAESTHESIA [None]
  - PULSE ABNORMAL [None]
